FAERS Safety Report 5705280-8 (Version None)
Quarter: 2008Q2

REPORT INFORMATION
  Report Type: 
  Country: None (occurrence: None)
  Receive Date: 20080410
  Receipt Date: 20080327
  Transmission Date: 20081010
  Serious: Yes (Other)
  Sender: FDA-Public Use
  Company Number: 2008000725

PATIENT
  Age: 60 Year
  Sex: Male

DRUGS (2)
  1. TARCEVA [Suspect]
     Indication: NON-SMALL CELL LUNG CANCER
     Dosage: 150 MG, QD
     Dates: start: 20080117
  2. ZOMETA [Concomitant]

REACTIONS (3)
  - CONDITION AGGRAVATED [None]
  - DIARRHOEA [None]
  - HAEMOPTYSIS [None]
